FAERS Safety Report 7013915-5 (Version None)
Quarter: 2010Q3

REPORT INFORMATION
  Report Type: 
  Country: None (occurrence: None)
  Receive Date: 20100924
  Receipt Date: 20100914
  Transmission Date: 20110219
  Serious: Yes (Hospitalization, Other)
  Sender: FDA-Public Use
  Company Number: US-MERCK-0908USA03739

PATIENT
  Age: 62 Year
  Sex: Male

DRUGS (4)
  1. FOSAMAX [Suspect]
     Indication: OSTEOPENIA
     Route: 048
     Dates: start: 20011001, end: 20071114
  2. FOSAMAX [Suspect]
     Indication: OSTEOPOROSIS
     Route: 048
     Dates: start: 20011001, end: 20071114
  3. TEGRETOL [Concomitant]
     Indication: CEREBROVASCULAR ARTERIOVENOUS MALFORMATION
     Route: 065
     Dates: start: 19910101
  4. PHENOBARBITAL [Concomitant]
     Indication: CEREBROVASCULAR ARTERIOVENOUS MALFORMATION
     Route: 065
     Dates: start: 19910101

REACTIONS (50)
  - ADVERSE EVENT [None]
  - ALOPECIA [None]
  - ARTHROPATHY [None]
  - ATRIAL FIBRILLATION [None]
  - BACK PAIN [None]
  - BLOOD SODIUM DECREASED [None]
  - BLOOD TESTOSTERONE DECREASED [None]
  - BRUXISM [None]
  - CEREBRAL ATROPHY [None]
  - CEREBRAL HYPOPERFUSION [None]
  - COLON CANCER [None]
  - DEEP VEIN THROMBOSIS [None]
  - DENTAL CARIES [None]
  - DIARRHOEA [None]
  - DRY MOUTH [None]
  - DYSPHAGIA [None]
  - EAR PAIN [None]
  - EXOSTOSIS [None]
  - GINGIVAL BLEEDING [None]
  - HEAD AND NECK CANCER [None]
  - HERNIA [None]
  - INSOMNIA [None]
  - JAW FRACTURE [None]
  - JOINT DISLOCATION [None]
  - JOINT RANGE OF MOTION DECREASED [None]
  - LYMPHADENOPATHY [None]
  - LYMPHOEDEMA [None]
  - METASTATIC NEOPLASM [None]
  - MICROCYTIC ANAEMIA [None]
  - MYALGIA [None]
  - NERVE INJURY [None]
  - NOCTURIA [None]
  - OROPHARYNGEAL PAIN [None]
  - OSTEOMYELITIS [None]
  - OSTEONECROSIS OF JAW [None]
  - PAIN IN JAW [None]
  - PALATAL DISORDER [None]
  - PERIODONTAL DISEASE [None]
  - PROSTATE CANCER [None]
  - PURULENCE [None]
  - SINUS POLYP [None]
  - TEMPOROMANDIBULAR JOINT SYNDROME [None]
  - TONGUE NEOPLASM MALIGNANT STAGE UNSPECIFIED [None]
  - TONSIL CANCER [None]
  - TOOTH ABSCESS [None]
  - TOOTH DEPOSIT [None]
  - TOOTH DISORDER [None]
  - TOOTH FRACTURE [None]
  - TOOTH INFECTION [None]
  - TRISMUS [None]
